FAERS Safety Report 8792133 (Version 1)
Quarter: 2012Q4

REPORT INFORMATION
  Report Type: 
  Country: US (occurrence: US)
  Receive Date: 20120918
  Receipt Date: 20120918
  Transmission Date: 20130627
  Serious: Yes (Other)
  Sender: FDA-Public Use
  Company Number: US-NOVOPROD-359607

PATIENT
  Age: 61 Year
  Sex: Female
  Weight: 53.97 kg

DRUGS (1)
  1. VAGIFEM [Suspect]
     Indication: VULVOVAGINAL DRYNESS
     Dosage: UNK
     Route: 067
     Dates: start: 20120719, end: 20120906

REACTIONS (2)
  - Cystitis [Not Recovered/Not Resolved]
  - Kidney infection [Not Recovered/Not Resolved]
